FAERS Safety Report 6201426-6 (Version None)
Quarter: 2009Q2

REPORT INFORMATION
  Report Type: 
  Country: None (occurrence: None)
  Receive Date: 20090520
  Receipt Date: 20090515
  Transmission Date: 20091009
  Serious: Yes (Hospitalization)
  Sender: FDA-Public Use
  Company Number: FABR-1000624

PATIENT
  Age: 33 Year
  Sex: Male
  Weight: 70.4 kg

DRUGS (2)
  1. FABRAZYME [Suspect]
     Indication: FABRY'S DISEASE
     Dosage: 70 MG, Q2W, INTRAVENOUS
     Route: 042
     Dates: start: 20080423
  2. BENADRYL [Concomitant]

REACTIONS (2)
  - BACK PAIN [None]
  - MALAISE [None]
